FAERS Safety Report 24703745 (Version 1)
Quarter: 2024Q4

REPORT INFORMATION
  Report Type: Spontaneous
  Country: DE (occurrence: DE)
  Receive Date: 20241206
  Receipt Date: 20241206
  Transmission Date: 20250114
  Serious: Yes (Other)
  Sender: AUROBINDO
  Company Number: DE-ROCHE-10000127962

PATIENT
  Age: 74 Year
  Sex: Male
  Weight: 105 kg

DRUGS (3)
  1. CARBOPLATIN [Suspect]
     Active Substance: CARBOPLATIN
     Indication: Neoplasm malignant
     Dosage: 350.1 MILLIGRAM
     Route: 042
     Dates: start: 20240423, end: 20240807
  2. GEMCITABINE [Suspect]
     Active Substance: GEMCITABINE
     Indication: Neoplasm malignant
     Dosage: 1725 MILLIGRAM
     Route: 042
     Dates: start: 20240423, end: 20240807
  3. DURVALUMAB [Suspect]
     Active Substance: DURVALUMAB
     Indication: Neoplasm malignant
     Dosage: 1500 MILLIGRAM
     Route: 042
     Dates: start: 20240423, end: 20240807

REACTIONS (1)
  - Haematotoxicity [Recovered/Resolved]

NARRATIVE: CASE EVENT DATE: 20240618
